FAERS Safety Report 16788257 (Version 3)
Quarter: 2019Q4

REPORT INFORMATION
  Report Type: Spontaneous
  Country: US (occurrence: US)
  Receive Date: 20190910
  Receipt Date: 20191205
  Transmission Date: 20200122
  Serious: No
  Sender: FDA-Public Use
  Company Number: US-BRISTOL-MYERS SQUIBB COMPANY-BMS-2019-087524

PATIENT
  Sex: Female
  Weight: 74.39 kg

DRUGS (2)
  1. VITAMIN D NOS [Concomitant]
     Active Substance: VITAMIN D NOS
     Indication: PRODUCT USED FOR UNKNOWN INDICATION
     Dosage: UNK
     Route: 065
  2. KENALOG-40 [Suspect]
     Active Substance: TRIAMCINOLONE ACETONIDE
     Indication: PRODUCT USED FOR UNKNOWN INDICATION
     Dosage: 30 MILLIGRAM
     Route: 014
     Dates: start: 20190806, end: 20190806

REACTIONS (18)
  - Anxiety [Unknown]
  - Insomnia [Unknown]
  - Feeding disorder [Unknown]
  - Vision blurred [Unknown]
  - Pain in extremity [Unknown]
  - Heart rate increased [Unknown]
  - Asthenia [Unknown]
  - Gait disturbance [Unknown]
  - Weight decreased [Unknown]
  - Decreased appetite [Unknown]
  - Tremor [Unknown]
  - Dyspnoea [Unknown]
  - Dysgraphia [Unknown]
  - Palpitations [Unknown]
  - Fatigue [Unknown]
  - Feeling abnormal [Unknown]
  - Nervousness [Unknown]
  - Arthralgia [Unknown]
